FAERS Safety Report 9914401 (Version 1)
Quarter: 2014Q1

REPORT INFORMATION
  Report Type: Spontaneous
  Country: US (occurrence: None)
  Receive Date: 20140219
  Receipt Date: 20140219
  Transmission Date: 20141002
  Serious: Yes (Other)
  Sender: FDA-Public Use
  Company Number: None

PATIENT
  Age: 47 Year
  Sex: Male
  Weight: 90.72 kg

DRUGS (1)
  1. ROXICODONE [Suspect]
     Indication: RHEUMATOID ARTHRITIS
     Dosage: 1 PILLS 5 X A DAY
     Route: 048
     Dates: start: 20140213, end: 20140214

REACTIONS (7)
  - Product quality issue [None]
  - Malaise [None]
  - Abdominal pain [None]
  - Hypertension [None]
  - Migraine [None]
  - Heart rate increased [None]
  - Feeling abnormal [None]
